FAERS Safety Report 8300099-6 (Version None)
Quarter: 2012Q2

REPORT INFORMATION
  Report Type: 
  Country: None (occurrence: None)
  Receive Date: 20120420
  Receipt Date: 20120417
  Transmission Date: 20120825
  Serious: No
  Sender: FDA-Public Use
  Company Number: US-PFIZER INC-2012074716

PATIENT
  Sex: Male

DRUGS (1)
  1. SUTENT [Suspect]
     Indication: RENAL CANCER
     Dosage: 50 MG/DAY, 4 WKS ON, 2 WKS OFF
     Route: 048
     Dates: start: 20120217, end: 20120315

REACTIONS (6)
  - DYSGEUSIA [None]
  - PAIN [None]
  - FATIGUE [None]
  - RASH [None]
  - DIARRHOEA [None]
  - ABDOMINAL DISCOMFORT [None]
